FAERS Safety Report 9771246 (Version 3)
Quarter: 2014Q3

REPORT INFORMATION
  Report Type: Spontaneous
  Country: US (occurrence: US)
  Receive Date: 20131218
  Receipt Date: 20140925
  Transmission Date: 20150326
  Serious: Yes (Other)
  Sender: FDA-Public Use
  Company Number: US-ABBVIE-13P-163-1179400-00

PATIENT
  Sex: Female
  Weight: 108.96 kg

DRUGS (6)
  1. CEPHALEXIN. [Suspect]
     Active Substance: CEPHALEXIN
     Indication: PROPHYLAXIS
  2. UNKNOWN CHOLESTEROL MEDICATION [Concomitant]
     Active Substance: UNSPECIFIED INGREDIENT
     Indication: BLOOD CHOLESTEROL
  3. UNKNOWN CHOLESTEROL DRUG [Concomitant]
     Indication: BLOOD CHOLESTEROL
  4. LISINOPRIL. [Concomitant]
     Active Substance: LISINOPRIL
     Indication: HYPERTENSION
  5. UNKNOWN HYPERTENSIVE [Concomitant]
     Indication: BLOOD PRESSURE
  6. HUMIRA [Suspect]
     Active Substance: ADALIMUMAB
     Indication: PSORIASIS
     Route: 058
     Dates: end: 201311

REACTIONS (15)
  - Incision site swelling [Unknown]
  - Purulent discharge [Unknown]
  - Osteoarthritis [Recovered/Resolved]
  - Incision site swelling [Recovered/Resolved]
  - Purulent discharge [Recovered/Resolved]
  - Staphylococcal infection [Not Recovered/Not Resolved]
  - Local swelling [Recovered/Resolved]
  - Tendon operation [Unknown]
  - Staphylococcal infection [Recovering/Resolving]
  - Infection [Unknown]
  - Muscle rupture [Recovering/Resolving]
  - Swelling face [Recovered/Resolved]
  - Skin graft failure [Unknown]
  - Tendon disorder [Recovered/Resolved]
  - Transplant failure [Recovered/Resolved]

NARRATIVE: CASE EVENT DATE: 2013
